FAERS Safety Report 7806945-4 (Version None)
Quarter: 2011Q4

REPORT INFORMATION
  Report Type: 
  Country: None (occurrence: None)
  Receive Date: 20111011
  Receipt Date: 20110930
  Transmission Date: 20120403
  Serious: Yes (Other)
  Sender: FDA-Public Use
  Company Number: US-JNJFOC-20100107544

PATIENT

DRUGS (5)
  1. SULFASALAZINE [Concomitant]
     Indication: CROHN'S DISEASE
  2. REMICADE [Suspect]
     Indication: CROHN'S DISEASE
     Route: 042
     Dates: start: 20020925
  3. REMICADE [Suspect]
     Route: 042
     Dates: start: 20021015
  4. NARCOTIC ANALGESICS, NOS [Concomitant]
     Indication: CROHN'S DISEASE
  5. REMICADE [Suspect]
     Route: 042
     Dates: start: 20021003

REACTIONS (1)
  - BREAST CANCER [None]
